FAERS Safety Report 7508895-X (Version None)
Quarter: 2011Q2

REPORT INFORMATION
  Report Type: 
  Country: None (occurrence: None)
  Receive Date: 20110527
  Receipt Date: 20110524
  Transmission Date: 20111010
  Serious: Yes (Life-Threatening, Other)
  Sender: FDA-Public Use
  Company Number: PHHY2011BR44927

PATIENT
  Sex: Female

DRUGS (5)
  1. ATROVENT [Concomitant]
  2. FORMOTEROL FUMARATE [Suspect]
  3. AEROLIN ^3M^ [Concomitant]
  4. BEROTEC [Concomitant]
  5. APRAZOLAN [Concomitant]

REACTIONS (5)
  - APPARENT DEATH [None]
  - MALAISE [None]
  - TREMOR [None]
  - WHEEZING [None]
  - TACHYCARDIA [None]
